FAERS Safety Report 6495076-4 (Version None)
Quarter: 2009Q4

REPORT INFORMATION
  Report Type: 
  Country: None (occurrence: None)
  Receive Date: 20091214
  Receipt Date: 20090428
  Transmission Date: 20100525
  Serious: No
  Sender: FDA-Public Use
  Company Number: US-BRISTOL-MYERS SQUIBB COMPANY-14604524

PATIENT
  Age: 6 Decade
  Sex: Male

DRUGS (3)
  1. ABILIFY [Suspect]
  2. LEXAPRO [Concomitant]
  3. PROZAC [Concomitant]

REACTIONS (1)
  - DYSTONIA [None]
